FAERS Safety Report 4547457-3 (Version None)
Quarter: 2005Q1

REPORT INFORMATION
  Report Type: 
  Country: None (occurrence: None)
  Receive Date: 20050107
  Receipt Date: 20041126
  Transmission Date: 20050727
  Serious: Yes (Other)
  Sender: FDA-Public Use
  Company Number: GB-GLAXOSMITHKLINE-B0358314A

PATIENT
  Age: 83 Year
  Sex: Female

DRUGS (7)
  1. AVANDIA [Suspect]
     Dosage: 4MG TWICE PER DAY
     Route: 048
     Dates: start: 20020101, end: 20040101
  2. CO-TENIDONE [Concomitant]
     Route: 048
  3. ENALAPRIL [Concomitant]
     Dosage: 2.5MG PER DAY
     Route: 048
  4. GLICLAZIDE [Concomitant]
     Dosage: 100MG TWICE PER DAY
     Route: 048
  5. IMODIUM [Concomitant]
     Dosage: 2MG AS REQUIRED
     Route: 048
  6. ASPIRIN [Concomitant]
     Dosage: 75MG PER DAY
     Route: 048
  7. QUININE [Concomitant]
     Dosage: 300MG AT NIGHT
     Route: 048

REACTIONS (5)
  - CREPITATIONS [None]
  - DYSPNOEA EXACERBATED [None]
  - JOINT SWELLING [None]
  - OEDEMA PERIPHERAL [None]
  - PULMONARY OEDEMA [None]
